FAERS Safety Report 11887191 (Version 3)
Quarter: 2016Q2

REPORT INFORMATION
  Report Type: Spontaneous
  Country: US (occurrence: US)
  Receive Date: 20160104
  Receipt Date: 20160502
  Transmission Date: 20160815
  Serious: Yes (Other)
  Sender: FDA-Public Use
  Company Number: US-RETROPHIN, INC.-2015RTN00009

PATIENT
  Age: 18 Year
  Sex: Female
  Weight: 66.67 kg

DRUGS (6)
  1. ADDERALL [Concomitant]
     Active Substance: AMPHETAMINE ASPARTATE\AMPHETAMINE SULFATE\DEXTROAMPHETAMINE SACCHARATE\DEXTROAMPHETAMINE SULFATE
     Indication: ATTENTION DEFICIT/HYPERACTIVITY DISORDER
  2. CHOLBAM [Suspect]
     Active Substance: CHOLIC ACID
     Indication: INBORN ERROR OF LIPID METABOLISM
     Dosage: 750 MG, 1X/DAY
     Dates: start: 201505
  3. CHOLIC ACID (INVESTIGATIONAL DRUG) [Suspect]
     Active Substance: CHOLIC ACID
     Indication: INBORN ERROR OF LIPID METABOLISM
     Dosage: 750 MG, 1X/DAY
     Dates: start: 20140204, end: 201505
  4. EFFEXOR [Concomitant]
     Active Substance: VENLAFAXINE HYDROCHLORIDE
     Indication: ANXIETY
  5. EFFEXOR [Concomitant]
     Active Substance: VENLAFAXINE HYDROCHLORIDE
     Indication: DEPRESSION
  6. IMPLANON [Concomitant]
     Active Substance: ETONOGESTREL

REACTIONS (8)
  - Neuropathy peripheral [Not Recovered/Not Resolved]
  - Cataract [Not Recovered/Not Resolved]
  - Disease progression [Not Recovered/Not Resolved]
  - Mental impairment [Not Recovered/Not Resolved]
  - Neck pain [Not Recovered/Not Resolved]
  - Drug ineffective [Not Recovered/Not Resolved]
  - Muscle spasticity [Not Recovered/Not Resolved]
  - Blood urine present [Not Recovered/Not Resolved]

NARRATIVE: CASE EVENT DATE: 201509
